FAERS Safety Report 13867458 (Version 4)
Quarter: 2018Q2

REPORT INFORMATION
  Report Type: Report from Study
  Country: US (occurrence: US)
  Receive Date: 20170814
  Receipt Date: 20180521
  Transmission Date: 20180711
  Serious: Yes (Hospitalization)
  Sender: FDA-Public Use
  Company Number: US-ACTELION-A-NJ2017-156018

PATIENT
  Age: 57 Year
  Sex: Male
  Weight: 113.38 kg

DRUGS (7)
  1. OXYGEN. [Concomitant]
     Active Substance: OXYGEN
     Dosage: 2 L/MIN, QAM AND 3L/MIN, QPM
  2. WARFARIN [Concomitant]
     Active Substance: WARFARIN
  3. ELIQUIS [Concomitant]
     Active Substance: APIXABAN
  4. ADCIRCA [Concomitant]
     Active Substance: TADALAFIL
     Dosage: UNK
     Dates: end: 20171004
  5. TRACLEER [Suspect]
     Active Substance: BOSENTAN
     Indication: PULMONARY HYPERTENSION
     Dosage: 125 MG, BID
     Route: 048
  6. TRACLEER [Suspect]
     Active Substance: BOSENTAN
     Dosage: 62.5 MG, BID
     Route: 048
  7. DILTIAZEM. [Concomitant]
     Active Substance: DILTIAZEM

REACTIONS (13)
  - Disease complication [Unknown]
  - Swelling [Unknown]
  - Weight increased [Unknown]
  - Heart rate increased [Unknown]
  - Blood potassium abnormal [Unknown]
  - Cardiac failure congestive [Unknown]
  - Chronic obstructive pulmonary disease [Unknown]
  - Asthma [Unknown]
  - Pneumonia [Unknown]
  - Hypertension [Recovered/Resolved]
  - Peripheral swelling [Unknown]
  - Myocardial infarction [Unknown]
  - Loss of consciousness [Unknown]
